FAERS Safety Report 8817278 (Version 8)
Quarter: 2013Q1

REPORT INFORMATION
  Report Type: Spontaneous
  Country: JP (occurrence: JP)
  Receive Date: 20121004
  Receipt Date: 20130214
  Transmission Date: 20140127
  Serious: Yes (Other)
  Sender: FDA-Public Use
  Company Number: JP-ELI_LILLY_AND_COMPANY-JP201206007210

PATIENT
  Age: 36 Year
  Sex: Male

DRUGS (4)
  1. BYETTA [Suspect]
     Indication: DIABETES MELLITUS
     Dosage: UNK UG, UNK
     Route: 058
  2. AMARYL [Concomitant]
     Dosage: 0.5 MG, UNK
  3. BIGUANIDE [Concomitant]
     Route: 048
  4. METFORMIN [Concomitant]
     Dosage: 9 DF, UNK
     Route: 048

REACTIONS (21)
  - Blood glucose increased [Recovering/Resolving]
  - Hypothermia [Unknown]
  - Cheilitis [Unknown]
  - Tinea infection [Unknown]
  - Blood glucose increased [Unknown]
  - Drug dose omission [Unknown]
  - Abdominal discomfort [Recovered/Resolved]
  - Hunger [Unknown]
  - Glycosylated haemoglobin increased [Unknown]
  - Weight fluctuation [Unknown]
  - Blood creatinine decreased [Unknown]
  - Muscular weakness [Unknown]
  - Hypoaesthesia [Unknown]
  - Abdominal distension [Unknown]
  - Drug ineffective [Unknown]
  - Injection site bruising [Recovered/Resolved]
  - Diarrhoea [Unknown]
  - Nausea [Unknown]
  - Vomiting [Unknown]
  - Gastrooesophageal reflux disease [Unknown]
  - Hypoglycaemia [Unknown]
